FAERS Safety Report 25194535 (Version 2)
Quarter: 2025Q2

REPORT INFORMATION
  Report Type: Spontaneous
  Country: US (occurrence: US)
  Receive Date: 20250414
  Receipt Date: 20250521
  Transmission Date: 20250717
  Serious: Yes (Hospitalization)
  Sender: Krystal Biotech
  Company Number: US-KRYSTAL BIOTECH, INC.-2025KRYUS00045

PATIENT
  Age: 5 Year
  Sex: Female

DRUGS (15)
  1. VYJUVEK [Suspect]
     Active Substance: BEREMAGENE GEPERPAVEC-SVDT
     Indication: Epidermolysis bullosa
     Route: 061
     Dates: start: 20241031
  2. DESONIDE [Concomitant]
     Active Substance: DESONIDE
     Indication: Pruritus
     Route: 061
  3. FAMOTIDINE [Concomitant]
     Active Substance: FAMOTIDINE
  4. FERROUS SULFATE [Concomitant]
     Active Substance: FERROUS SULFATE
  5. VITAMINS [Concomitant]
     Active Substance: VITAMINS
  6. POLYETHYLENE GLYCOL 3350 [Concomitant]
     Active Substance: POLYETHYLENE GLYCOL 3350
     Indication: Constipation
     Route: 048
  7. THIAMINE [Concomitant]
     Active Substance: THIAMINE
  8. ACETAMINOPHEN [Concomitant]
     Active Substance: ACETAMINOPHEN
     Indication: Pain
     Route: 048
  9. ACETAMINOPHEN [Concomitant]
     Active Substance: ACETAMINOPHEN
     Indication: Pyrexia
  10. CETIRIZINE [Concomitant]
     Active Substance: CETIRIZINE HYDROCHLORIDE
  11. HYDROXYZINE [Concomitant]
     Active Substance: HYDROXYZINE HYDROCHLORIDE
     Indication: Pruritus
  12. IBUPROFEN [Concomitant]
     Active Substance: IBUPROFEN
     Indication: Pain
     Route: 048
  13. MINERAL OIL [Concomitant]
     Active Substance: MINERAL OIL
     Route: 061
  14. MUPIROCIN [Concomitant]
     Active Substance: MUPIROCIN
     Route: 061
  15. NALOXONE [Concomitant]
     Active Substance: NALOXONE
     Route: 045

REACTIONS (1)
  - Wound infection staphylococcal [Recovered/Resolved]
